FAERS Safety Report 5218721-X (Version None)
Quarter: 2007Q1

REPORT INFORMATION
  Report Type: 
  Country: None (occurrence: None)
  Receive Date: 20070122
  Receipt Date: 20070111
  Transmission Date: 20070707
  Serious: Yes (Hospitalization, Other)
  Sender: FDA-Public Use
  Company Number: GXKR2007US00738

PATIENT
  Age: 3 Month
  Sex: Female

DRUGS (1)
  1. CEFTRIAXONE [Suspect]
     Indication: PYREXIA
     Dosage: 250 MG, INTRAVENOUS
     Route: 042
     Dates: start: 20070109, end: 20070109

REACTIONS (6)
  - FOAMING AT MOUTH [None]
  - HYPERSENSITIVITY [None]
  - LOCAL SWELLING [None]
  - RASH MACULO-PAPULAR [None]
  - SALIVARY HYPERSECRETION [None]
  - SWELLING FACE [None]
